FAERS Safety Report 21755985 (Version 1)
Quarter: 2022Q4

REPORT INFORMATION
  Report Type: Spontaneous
  Country: MY (occurrence: MY)
  Receive Date: 20221220
  Receipt Date: 20221220
  Transmission Date: 20230112
  Serious: Yes (Other)
  Sender: FDA-Public Use
  Company Number: MY-FreseniusKabi-FK202217845

PATIENT
  Age: 26 Year
  Sex: Female

DRUGS (1)
  1. ETOPOSIDE [Suspect]
     Active Substance: ETOPOSIDE
     Indication: Chemotherapy
     Route: 041

REACTIONS (2)
  - Presyncope [Recovered/Resolved]
  - Chest discomfort [Recovered/Resolved]
